FAERS Safety Report 6321977-3 (Version None)
Quarter: 2009Q3

REPORT INFORMATION
  Report Type: 
  Country: None (occurrence: None)
  Receive Date: 20090824
  Receipt Date: 20090813
  Transmission Date: 20100115
  Serious: Yes (Other)
  Sender: FDA-Public Use
  Company Number: AU-ASTRAZENECA-2009SE06703

PATIENT
  Age: 27585 Day
  Sex: Female
  Weight: 47.5 kg

DRUGS (5)
  1. NEXIUM [Suspect]
     Indication: GASTRODUODENAL ULCER
     Route: 048
     Dates: start: 20060717, end: 20060804
  2. NORVASC [Concomitant]
     Route: 048
  3. ATACAND HCT [Concomitant]
     Route: 048
  4. LIPITOR [Concomitant]
     Route: 048
  5. TENORMIN [Concomitant]
     Route: 048

REACTIONS (3)
  - BACTERIA STOOL IDENTIFIED [None]
  - CLOSTRIDIUM DIFFICILE TOXIN TEST POSITIVE [None]
  - MUCOUS STOOLS [None]
